FAERS Safety Report 5068309-9 (Version None)
Quarter: 2006Q3

REPORT INFORMATION
  Report Type: 
  Country: None (occurrence: None)
  Receive Date: 20060802
  Receipt Date: 20050727
  Transmission Date: 20061208
  Serious: No
  Sender: FDA-Public Use
  Company Number: US-BRISTOL-MYERS SQUIBB COMPANY-13052857

PATIENT
  Age: 77 Year
  Sex: Female
  Weight: 63 kg

DRUGS (4)
  1. COUMADIN [Suspect]
     Indication: TRANSIENT ISCHAEMIC ATTACK
     Dates: start: 20021101
  2. DIGOXIN [Concomitant]
  3. ESTROGEN PATCH [Concomitant]
  4. PROVERA [Concomitant]

REACTIONS (1)
  - ONYCHOCLASIS [None]
